FAERS Safety Report 5140254-X (Version None)
Quarter: 2006Q4

REPORT INFORMATION
  Report Type: 
  Country: None (occurrence: None)
  Receive Date: 20061026
  Receipt Date: 20061026
  Transmission Date: 20070319
  Serious: Yes (Hospitalization)
  Sender: FDA-Public Use
  Company Number: None

PATIENT
  Age: 75 Year
  Sex: Female

DRUGS (6)
  1. SULAR [Suspect]
     Dosage: 20 MG
  2. FOSAMAX [Concomitant]
  3. CRESTOR [Concomitant]
  4. BENICAR HCT [Concomitant]
  5. METOPROLOL TARTRATE [Concomitant]
  6. ASPIRIN [Concomitant]

REACTIONS (1)
  - LABYRINTHITIS [None]
